FAERS Safety Report 11569235 (Version 1)
Quarter: 2015Q3

REPORT INFORMATION
  Report Type: Spontaneous
  Country: US (occurrence: US)
  Receive Date: 20150929
  Receipt Date: 20150929
  Transmission Date: 20151125
  Serious: No
  Sender: FDA-Public Use
  Company Number: US-JNJFOC-20150917018

PATIENT
  Age: 27 Year
  Sex: Female
  Weight: 83.92 kg

DRUGS (2)
  1. PEPCID AC MAXIMUM STRENGTH [Suspect]
     Active Substance: FAMOTIDINE
     Route: 048
  2. PEPCID AC MAXIMUM STRENGTH [Suspect]
     Active Substance: FAMOTIDINE
     Indication: URTICARIA
     Dosage: 2 TABLETS DAILY
     Route: 048

REACTIONS (2)
  - Product use issue [Not Recovered/Not Resolved]
  - Dyspepsia [Not Recovered/Not Resolved]
